FAERS Safety Report 8072048-X (Version None)
Quarter: 2012Q1

REPORT INFORMATION
  Report Type: 
  Country: None (occurrence: None)
  Receive Date: 20120124
  Receipt Date: 20120124
  Transmission Date: 20120608
  Serious: Yes (Life-Threatening, Hospitalization)
  Sender: FDA-Public Use
  Company Number: None

PATIENT
  Age: 79 Year
  Sex: Male
  Weight: 85.6 kg

DRUGS (1)
  1. PRASUGREL [Suspect]
     Indication: SURGERY
     Dosage: 10 MG EVERY DAY PO
     Route: 048
     Dates: start: 20110815, end: 20110915

REACTIONS (1)
  - GASTROINTESTINAL HAEMORRHAGE [None]
